FAERS Safety Report 6136696-6 (Version None)
Quarter: 2009Q1

REPORT INFORMATION
  Report Type: 
  Country: None (occurrence: None)
  Receive Date: 20090330
  Receipt Date: 20090317
  Transmission Date: 20090719
  Serious: Yes (Hospitalization, Other)
  Sender: FDA-Public Use
  Company Number: PHHY2009FR10215

PATIENT
  Age: 90 Year
  Sex: Male

DRUGS (5)
  1. LESCOL [Suspect]
     Indication: DYSLIPIDAEMIA
     Dosage: UNK
     Dates: start: 20090101, end: 20090205
  2. VASTAREL [Suspect]
     Dosage: 2 DF, QD
  3. MOLSIDOMINE [Concomitant]
  4. ASPEGIC 325 [Concomitant]
  5. BISOPROLOL [Concomitant]

REACTIONS (6)
  - ASTHENIA [None]
  - DYSSTASIA [None]
  - FALL [None]
  - LOSS OF CONSCIOUSNESS [None]
  - MALAISE [None]
  - SYSTEMIC INFLAMMATORY RESPONSE SYNDROME [None]
